FAERS Safety Report 13331616 (Version 1)
Quarter: 2017Q1

REPORT INFORMATION
  Report Type: Spontaneous
  Country: US (occurrence: US)
  Receive Date: 20170314
  Receipt Date: 20170314
  Transmission Date: 20170428
  Serious: No
  Sender: FDA-Public Use
  Company Number: US-JNJFOC-20170106401

PATIENT
  Age: 83 Year
  Sex: Female
  Weight: 59.88 kg

DRUGS (2)
  1. CLONAZEPAM. [Concomitant]
     Active Substance: CLONAZEPAM
     Indication: ANXIETY
     Route: 065
  2. TYLENOL REGULAR STRENGTH [Suspect]
     Active Substance: ACETAMINOPHEN
     Indication: ARTHRALGIA
     Dosage: IN THE MORNING AND AT BEDTIME
     Route: 048
     Dates: start: 20170106, end: 20170106

REACTIONS (4)
  - Product physical issue [Unknown]
  - Fatigue [Recovered/Resolved]
  - Foreign body [Unknown]
  - Wrong technique in product usage process [Unknown]

NARRATIVE: CASE EVENT DATE: 20170106
